FAERS Safety Report 13188210 (Version 1)
Quarter: 2017Q1

REPORT INFORMATION
  Report Type: Spontaneous
  Country: JP (occurrence: JP)
  Receive Date: 20170206
  Receipt Date: 20170206
  Transmission Date: 20170428
  Serious: Yes (Other)
  Sender: FDA-Public Use
  Company Number: JP-OTSUKA-JP-2015-10281

PATIENT
  Age: 33 Year
  Sex: Male

DRUGS (2)
  1. QUINIDINE [Concomitant]
     Active Substance: QUINIDINE
     Indication: BRUGADA SYNDROME
     Dosage: 1200 MG, UNK
     Route: 048
  2. PLETAAL OD TABLETS 50MG [Suspect]
     Active Substance: CILOSTAZOL
     Indication: BRUGADA SYNDROME
     Dosage: 200 MG, UNK
     Route: 048

REACTIONS (2)
  - Ventricular arrhythmia [Recovering/Resolving]
  - Off label use [Unknown]
